FAERS Safety Report 10898838 (Version 1)
Quarter: 2015Q1

REPORT INFORMATION
  Report Type: Spontaneous
  Country: IT (occurrence: IT)
  Receive Date: 20150309
  Receipt Date: 20150309
  Transmission Date: 20150721
  Serious: Yes (Hospitalization)
  Sender: FDA-Public Use
  Company Number: PHHY2015IT024217

PATIENT
  Age: 77 Year
  Sex: Male

DRUGS (2)
  1. TICLOPIDINE [Suspect]
     Active Substance: TICLOPIDINE
     Indication: IDIOPATHIC PULMONARY FIBROSIS
     Route: 048
  2. WARFARIN [Suspect]
     Active Substance: WARFARIN
     Indication: IDIOPATHIC PULMONARY FIBROSIS
     Route: 048

REACTIONS (2)
  - Drug administration error [Unknown]
  - Palpable purpura [Recovered/Resolved]
